FAERS Safety Report 14418864 (Version 2)
Quarter: 2018Q1

REPORT INFORMATION
  Report Type: Spontaneous
  Country: DE (occurrence: DE)
  Receive Date: 20180122
  Receipt Date: 20180206
  Transmission Date: 20180509
  Serious: Yes (Hospitalization, Other)
  Sender: FDA-Public Use
  Company Number: DE-MYLANLABS-2018M1004238

PATIENT
  Age: 92 Year
  Sex: Female

DRUGS (18)
  1. AMLODIPINE [Interacting]
     Active Substance: AMLODIPINE BESYLATE
     Indication: PRODUCT USED FOR UNKNOWN INDICATION
     Dosage: 5 MG, QD, ANWENDUNG SEIT LANGEREM
     Route: 048
     Dates: end: 20170305
  2. HALDOL [Interacting]
     Active Substance: HALOPERIDOL
     Indication: DELIRIUM
     Dosage: UNK
     Route: 065
  3. RISPERDAL [Interacting]
     Active Substance: RISPERIDONE
     Indication: DELIRIUM
     Dosage: 1 MG, UNK
     Route: 048
     Dates: start: 20170303, end: 20170305
  4. HCT [Interacting]
     Active Substance: HYDROCHLOROTHIAZIDE
     Indication: PRODUCT USED FOR UNKNOWN INDICATION
     Dosage: 25 MG, QD, ANWENDUNG SEIT LANGEREM
     Route: 048
     Dates: end: 20170305
  5. ACTRAPID [Concomitant]
     Active Substance: INSULIN HUMAN
     Indication: PRODUCT USED FOR UNKNOWN INDICATION
     Dosage: 11 IU, QD, ANWENDUNG SEIT LANGEREM
     Route: 058
     Dates: end: 20170305
  6. PIPAMPERON [Concomitant]
     Active Substance: PIPAMPERONE HYDROCHLORIDE
     Dosage: 20 MG, QD
     Route: 048
     Dates: start: 20170302, end: 20170303
  7. HALDOL [Interacting]
     Active Substance: HALOPERIDOL
     Indication: DEMENTIA
     Dosage: 5 MG, UNK
     Route: 065
  8. HALDOL [Interacting]
     Active Substance: HALOPERIDOL
     Dosage: 5 MG, UNK
     Route: 065
  9. RISPERDAL [Interacting]
     Active Substance: RISPERIDONE
     Indication: DEMENTIA
     Dosage: 1 MG, QD
     Route: 048
     Dates: start: 20170303, end: 20170305
  10. LEVEMIR [Concomitant]
     Active Substance: INSULIN DETEMIR
     Indication: PRODUCT USED FOR UNKNOWN INDICATION
     Dosage: 4 IU, QD, ANWENDUNG SEIT LANGEREM
     Route: 058
     Dates: end: 20170305
  11. METOPROLOL. [Suspect]
     Active Substance: METOPROLOL
     Indication: PRODUCT USED FOR UNKNOWN INDICATION
     Dosage: 50 MG, QD, ANWENDUNG SEIT LANGEREM
     Route: 048
     Dates: end: 20170305
  12. PROTHIPENDYL [Interacting]
     Active Substance: PROTHIPENDYL
     Indication: PRODUCT USED FOR UNKNOWN INDICATION
     Dosage: 80 MG, QD
     Route: 048
     Dates: start: 20170214, end: 20170305
  13. HALDOL [Interacting]
     Active Substance: HALOPERIDOL
     Dosage: UNK
     Route: 065
  14. ACETYLSALICYLIC ACID [Concomitant]
     Active Substance: ASPIRIN
     Indication: PRODUCT USED FOR UNKNOWN INDICATION
     Dosage: 100 MG, QD
     Route: 048
     Dates: start: 2014, end: 20170305
  15. RISPERIDONE. [Suspect]
     Active Substance: RISPERIDONE
     Indication: PRODUCT USED FOR UNKNOWN INDICATION
     Dosage: 1 MG, QD
     Route: 048
     Dates: start: 20170303, end: 20170305
  16. RAMIPRIL. [Interacting]
     Active Substance: RAMIPRIL
     Indication: PRODUCT USED FOR UNKNOWN INDICATION
     Dosage: 5 MG, QD, ANWENDUNG SEIT LANGEREM
     Route: 048
     Dates: end: 20170305
  17. PIPAMPERON [Concomitant]
     Active Substance: PIPAMPERONE HYDROCHLORIDE
     Indication: RESTLESSNESS
     Dosage: 40 MG, QD
     Route: 048
     Dates: start: 20170305
  18. ATORVASTATIN [Concomitant]
     Active Substance: ATORVASTATIN
     Indication: PRODUCT USED FOR UNKNOWN INDICATION
     Dosage: 10 MG, QD
     Route: 048
     Dates: start: 2014, end: 20170305

REACTIONS (7)
  - Altered state of consciousness [Unknown]
  - Hypotension [Unknown]
  - Acute myocardial infarction [Unknown]
  - Myocardial infarction [Unknown]
  - Bradycardia [Unknown]
  - Cardiogenic shock [Unknown]
  - Drug interaction [Unknown]

NARRATIVE: CASE EVENT DATE: 201703
